FAERS Safety Report 9339017 (Version 1)
Quarter: 2013Q2

REPORT INFORMATION
  Report Type: Spontaneous
  Country: US (occurrence: US)
  Receive Date: 20130610
  Receipt Date: 20130610
  Transmission Date: 20140414
  Serious: No
  Sender: FDA-Public Use
  Company Number: US-GLAXOSMITHKLINE-A0984939A

PATIENT
  Sex: Female

DRUGS (1)
  1. ALTABAX [Suspect]
     Route: 061

REACTIONS (1)
  - Application site erythema [Unknown]
